FAERS Safety Report 13030797 (Version 1)
Quarter: 2016Q4

REPORT INFORMATION
  Report Type: Spontaneous
  Country: US (occurrence: US)
  Receive Date: 20161215
  Receipt Date: 20161215
  Transmission Date: 20170207
  Serious: No
  Sender: FDA-Public Use
  Company Number: US-BAUSCH-BL-2016-011465

PATIENT
  Sex: Female

DRUGS (4)
  1. APRISO [Suspect]
     Active Substance: MESALAMINE
     Route: 048
  2. FLEXINOL [Concomitant]
     Indication: DEPRESSION
  3. APRISO [Suspect]
     Active Substance: MESALAMINE
     Indication: COLITIS
     Route: 048
  4. APRISO [Suspect]
     Active Substance: MESALAMINE
     Route: 048

REACTIONS (2)
  - Colitis [Not Recovered/Not Resolved]
  - Drug administration error [Unknown]
